FAERS Safety Report 4530072-5 (Version None)
Quarter: 2004Q4

REPORT INFORMATION
  Report Type: 
  Country: None (occurrence: None)
  Receive Date: 20041215
  Receipt Date: 20041206
  Transmission Date: 20050328
  Serious: Yes (Death)
  Sender: FDA-Public Use
  Company Number: USA-2004-0017958

PATIENT
  Age: 69 Year
  Sex: Female
  Weight: 113.4 kg

DRUGS (1)
  1. BETASEPT 4% (CHLORHEXIDINE GLUCONATE) TOPICAL SOLUTION [Suspect]

REACTIONS (2)
  - MEDICATION ERROR [None]
  - POST PROCEDURAL COMPLICATION [None]
